FAERS Safety Report 15967334 (Version 1)
Quarter: 2019Q1

REPORT INFORMATION
  Report Type: Spontaneous
  Country: US (occurrence: US)
  Receive Date: 20190215
  Receipt Date: 20190215
  Transmission Date: 20190418
  Serious: Yes (Hospitalization)
  Sender: FDA-Public Use
  Company Number: None

PATIENT
  Age: 22 Year
  Sex: Female

DRUGS (3)
  1. TOBI PODHALER [Concomitant]
     Active Substance: TOBRAMYCIN
     Dates: start: 20180727
  2. PULMOZYME 2.5/2.5ML NEB [Concomitant]
     Dates: start: 20180713
  3. ORKAMBI [Suspect]
     Active Substance: IVACAFTOR\LUMACAFTOR
     Indication: CYSTIC FIBROSIS
     Dosage: ?          OTHER FREQUENCY:EVERY 12 HOURS;?
     Route: 048
     Dates: start: 20180713

REACTIONS (1)
  - Lung infection [None]

NARRATIVE: CASE EVENT DATE: 20190214
